FAERS Safety Report 8453655-9 (Version None)
Quarter: 2012Q2

REPORT INFORMATION
  Report Type: 
  Country: None (occurrence: None)
  Receive Date: 20120620
  Receipt Date: 20120611
  Transmission Date: 20120825
  Serious: Yes (Other)
  Sender: FDA-Public Use
  Company Number: JP-BAYER-2012-058151

PATIENT
  Age: 69 Year
  Sex: Male

DRUGS (10)
  1. ACARBOSE [Suspect]
     Dosage: DAILY DOSE 200 MG
     Route: 048
     Dates: start: 20111003
  2. ACARBOSE [Suspect]
     Dosage: DAILY DOSE 200 MG
     Route: 048
     Dates: start: 20110613, end: 20110927
  3. JANUVIA [Concomitant]
     Dosage: DAILY DOSE 25 MG
     Route: 048
     Dates: start: 20111102
  4. ACARBOSE [Suspect]
     Indication: DIABETES MELLITUS
     Dosage: DAILY DOSE 100 MG
     Route: 048
     Dates: start: 20110516, end: 20110613
  5. PLETAL [Suspect]
     Dosage: DAILY DOSE 200 MG
     Route: 048
  6. RETICOLAN [Concomitant]
     Dosage: DAILY DOSE 1500 ?G
     Route: 048
  7. JANUVIA [Concomitant]
     Indication: DIABETES MELLITUS
     Dosage: DAILY DOSE 50 MG
     Route: 048
     Dates: start: 20111011, end: 20111101
  8. AMARYL [Concomitant]
     Indication: DIABETES MELLITUS
     Dosage: DAILY DOSE 2 MG
     Route: 048
     Dates: end: 20110927
  9. AMARYL [Concomitant]
     Dosage: DAILY DOSE 1 MG
     Route: 048
     Dates: start: 20111004
  10. NIZATIDINE [Concomitant]
     Route: 048

REACTIONS (2)
  - ANGINA PECTORIS [None]
  - GASTRIC ULCER HAEMORRHAGE [None]
